FAERS Safety Report 7431977-8 (Version None)
Quarter: 2011Q2

REPORT INFORMATION
  Report Type: 
  Country: None (occurrence: None)
  Receive Date: 20110422
  Receipt Date: 20110304
  Transmission Date: 20111010
  Serious: Yes (Other)
  Sender: FDA-Public Use
  Company Number: PHHY2011JP18537

PATIENT
  Age: 50 Year
  Sex: Female

DRUGS (3)
  1. FLUOROURACIL [Suspect]
     Indication: COLON CANCER
     Dosage: UNK
  2. FOLINIC ACID [Suspect]
     Indication: COLON CANCER
  3. OXALIPLATIN [Suspect]
     Indication: COLON CANCER

REACTIONS (2)
  - VOMITING [None]
  - NAUSEA [None]
